FAERS Safety Report 5758022-4 (Version None)
Quarter: 2008Q2

REPORT INFORMATION
  Report Type: 
  Country: None (occurrence: None)
  Receive Date: 20080602
  Receipt Date: 20080602
  Transmission Date: 20081010
  Serious: Yes (Other)
  Sender: FDA-Public Use
  Company Number: None

PATIENT
  Age: 50 Year
  Sex: Female
  Weight: 49.8957 kg

DRUGS (1)
  1. CLINDAMYCIN HCL [Suspect]
     Indication: ORAL INFECTION
     Dosage: 300MG EVERY 6 HOURS PO
     Route: 048
     Dates: start: 20080516, end: 20080523

REACTIONS (4)
  - CHILLS [None]
  - DIARRHOEA [None]
  - PYREXIA [None]
  - RASH [None]
